FAERS Safety Report 6395032-0 (Version None)
Quarter: 2009Q4

REPORT INFORMATION
  Report Type: 
  Country: None (occurrence: None)
  Receive Date: 20091009
  Receipt Date: 20090930
  Transmission Date: 20100525
  Serious: Yes (Hospitalization, Disabling)
  Sender: FDA-Public Use
  Company Number: GB-ASTRAZENECA-2009SE14089

PATIENT
  Sex: Male

DRUGS (10)
  1. ZOLADEX [Suspect]
     Indication: PROSTATE CANCER
     Route: 058
     Dates: start: 20090601
  2. ASCORBIC ACID [Concomitant]
  3. CANDESARTAN CILEXETIL [Concomitant]
  4. CLOPIDOGREL [Concomitant]
  5. LEVOTHYROXINE [Concomitant]
  6. LANSOPRAZOLE [Concomitant]
  7. CARVEDILOL [Concomitant]
  8. PENICILLIN V [Concomitant]
  9. EZETIMIBE [Concomitant]
  10. EBIXA [Concomitant]

REACTIONS (2)
  - GENERAL PHYSICAL HEALTH DETERIORATION [None]
  - MENTAL IMPAIRMENT [None]
